FAERS Safety Report 16325598 (Version 1)
Quarter: 2019Q2

REPORT INFORMATION
  Report Type: Spontaneous
  Country: PT (occurrence: PT)
  Receive Date: 20190517
  Receipt Date: 20190517
  Transmission Date: 20190711
  Serious: Yes (Hospitalization, Other)
  Sender: FDA-Public Use
  Company Number: PT-PFIZER INC-2019206581

PATIENT
  Age: 55 Year
  Sex: Female

DRUGS (5)
  1. CALCIUM CARBONATE W/COLECALCIFEROL [Suspect]
     Active Substance: CALCIUM CARBONATE\CHOLECALCIFEROL
     Indication: SJOGREN^S SYNDROME
  2. CALCIUM CARBONATE W/COLECALCIFEROL [Suspect]
     Active Substance: CALCIUM CARBONATE\CHOLECALCIFEROL
     Indication: APHTHOUS ULCER
     Dosage: 1 DF, 1X/DAY (1500MG+400IU)
  3. METHYLPREDNISOLONE. [Suspect]
     Active Substance: METHYLPREDNISOLONE
     Dosage: 4 MG, 2X/DAY
  4. SULFASALAZINE. [Suspect]
     Active Substance: SULFASALAZINE
     Indication: APHTHOUS ULCER
     Dosage: 500 MG, 2X/DAY
  5. SULFASALAZINE. [Suspect]
     Active Substance: SULFASALAZINE
     Indication: SJOGREN^S SYNDROME

REACTIONS (1)
  - Drug reaction with eosinophilia and systemic symptoms [Recovered/Resolved]
